FAERS Safety Report 25072642 (Version 1)
Quarter: 2025Q1

REPORT INFORMATION
  Report Type: Spontaneous
  Country: CA (occurrence: CA)
  Receive Date: 20250313
  Receipt Date: 20250313
  Transmission Date: 20250409
  Serious: Yes (Other)
  Sender: ROCHE
  Company Number: CA-ROCHE-10000225282

PATIENT
  Sex: Female

DRUGS (2)
  1. OCREVUS [Suspect]
     Active Substance: OCRELIZUMAB
     Indication: Relapsing-remitting multiple sclerosis
     Route: 042
  2. VYEPTI [Concomitant]
     Active Substance: EPTINEZUMAB-JJMR
     Route: 042
     Dates: start: 20241218

REACTIONS (2)
  - Perforated ulcer [Unknown]
  - Gastrointestinal haemorrhage [Unknown]
